FAERS Safety Report 12177839 (Version 2)
Quarter: 2016Q1

REPORT INFORMATION
  Report Type: Spontaneous
  Country: US (occurrence: US)
  Receive Date: 20160314
  Receipt Date: 20160315
  Transmission Date: 20160526
  Serious: No
  Sender: FDA-Public Use
  Company Number: US-SA-2016SA045170

PATIENT
  Sex: Female

DRUGS (1)
  1. ACT TOTAL CARE DRY MOUTH ANTICAVITY MOUTH [Suspect]
     Active Substance: SODIUM FLUORIDE
     Indication: DRY MOUTH
     Route: 065

REACTIONS (1)
  - Oral discomfort [Unknown]
